FAERS Safety Report 6458670-2 (Version None)
Quarter: 2009Q4

REPORT INFORMATION
  Report Type: 
  Country: None (occurrence: None)
  Receive Date: 20091120
  Receipt Date: 20091113
  Transmission Date: 20100525
  Serious: Yes (Death, Hospitalization, Other)
  Sender: FDA-Public Use
  Company Number: A20090714-002

PATIENT
  Age: 81 Year
  Sex: Female

DRUGS (11)
  1. PITAVASTATIN CALCIUM [Suspect]
     Indication: DYSLIPIDAEMIA
     Dosage: 1MG, PO
     Route: 048
     Dates: start: 20090401, end: 20090818
  2. CANDESARTAN CILEXETIL [Concomitant]
  3. DIASTASE COMBINED DRUG [Concomitant]
  4. VERAPAMIL HCL [Concomitant]
  5. DISOPYRAMIDE [Concomitant]
  6. ETIZOLAM [Concomitant]
  7. DIAZEPAM [Concomitant]
  8. TRIAZOLAM [Concomitant]
  9. NIMETAZEPAM [Concomitant]
  10. MILNACIPRAN HYDROCHLORIDE [Concomitant]
  11. CLOMIPRAMINE HYDROCHLORIDE [Concomitant]

REACTIONS (5)
  - CAROTID ARTERY DISEASE [None]
  - EMBOLIC STROKE [None]
  - LACUNAR INFARCTION [None]
  - RHABDOMYOLYSIS [None]
  - SHOCK HAEMORRHAGIC [None]
